FAERS Safety Report 25504918 (Version 1)
Quarter: 2025Q3

REPORT INFORMATION
  Report Type: Spontaneous
  Country: AU (occurrence: AU)
  Receive Date: 20250702
  Receipt Date: 20250702
  Transmission Date: 20251020
  Serious: Yes (Other)
  Sender: NOVARTIS
  Company Number: AU-SUN PHARMACEUTICAL INDUSTRIES  LTD-2025RR-508678

PATIENT
  Sex: Female

DRUGS (3)
  1. OCTREOTIDE [Suspect]
     Active Substance: OCTREOTIDE
     Indication: Hyperinsulinaemic hypoglycaemia
     Dosage: 1 DOSAGE FORM, QD (45 MICORGRAM/KILOGRAM)
     Route: 058
  2. OCTREOTIDE [Suspect]
     Active Substance: OCTREOTIDE
  3. OCTREOTIDE [Suspect]
     Active Substance: OCTREOTIDE

REACTIONS (3)
  - Hypoglycaemia [Unknown]
  - Drug ineffective [Unknown]
  - Weight increased [Unknown]
